FAERS Safety Report 4981573-7 (Version None)
Quarter: 2006Q2

REPORT INFORMATION
  Report Type: 
  Country: None (occurrence: None)
  Receive Date: 20060420
  Receipt Date: 20060420
  Transmission Date: 20061013
  Serious: Yes (Hospitalization)
  Sender: FDA-Public Use
  Company Number: None

PATIENT
  Age: 51 Year
  Sex: Male
  Weight: 89.4 kg

DRUGS (14)
  1. BACTRIM DS [Suspect]
  2. FOLIC ACID [Concomitant]
  3. ACETAMINOPHEN [Concomitant]
  4. MOXIFLOXACIN HCL [Concomitant]
  5. POTASSIUM CHLORIDE [Concomitant]
  6. PROCHLORPERAZINE [Concomitant]
  7. SULFAMETHOXAZOLE 800/TRIMETH 160 MG [Concomitant]
  8. LORAZEPAM [Concomitant]
  9. TRAZODONE HCL [Concomitant]
  10. THIAMINE [Concomitant]
  11. MULTIVITAMINS/ZINC (CENTRUM) [Concomitant]
  12. MAGNESIUM HYDROXIDE TAB [Concomitant]
  13. DM 10/GUAIF ALOH/MGOH/SIMTH XTRA STRENGTH SUSP [Concomitant]
  14. PHENAZOPYRIDINE [Concomitant]

REACTIONS (2)
  - ANAEMIA [None]
  - RENAL IMPAIRMENT [None]
